FAERS Safety Report 23739156 (Version 1)
Quarter: 2024Q2

REPORT INFORMATION
  Report Type: Spontaneous
  Country: US (occurrence: US)
  Receive Date: 20240413
  Receipt Date: 20240413
  Transmission Date: 20240715
  Serious: No
  Sender: FDA-Public Use
  Company Number: US-JNJFOC-20240404161

PATIENT
  Age: 27 Year
  Sex: Female

DRUGS (1)
  1. WOMENS ROGAINE UNSCENTED [Suspect]
     Active Substance: MINOXIDIL
     Indication: Alopecia
     Dosage: PRODUCT DOSE OR QUANTITY: 1 PUMP
     Route: 061
     Dates: start: 20240328, end: 202403

REACTIONS (1)
  - Heart rate irregular [Recovering/Resolving]

NARRATIVE: CASE EVENT DATE: 20240328
